FAERS Safety Report 4868182-5 (Version None)
Quarter: 2005Q4

REPORT INFORMATION
  Report Type: 
  Country: None (occurrence: None)
  Receive Date: 20051229
  Receipt Date: 20051208
  Transmission Date: 20060501
  Serious: Yes (Other)
  Sender: FDA-Public Use
  Company Number: JP-SP-2005-02734

PATIENT
  Age: 58 Year
  Sex: Male

DRUGS (3)
  1. IMMUCYST [Suspect]
     Indication: BLADDER CANCER
     Route: 043
     Dates: start: 20051003, end: 20051128
  2. UFT [Concomitant]
     Dates: start: 20031201
  3. BENAXATE HYDROCHLORIDE BETADEX [Concomitant]

REACTIONS (4)
  - ARTHRALGIA [None]
  - POLLAKIURIA [None]
  - PYREXIA [None]
  - URINE ABNORMALITY [None]
